FAERS Safety Report 5924037-6 (Version None)
Quarter: 2008Q4

REPORT INFORMATION
  Report Type: 
  Country: None (occurrence: None)
  Receive Date: 20081020
  Receipt Date: 20081014
  Transmission Date: 20090506
  Serious: Yes (Hospitalization, Other)
  Sender: FDA-Public Use
  Company Number: PHHY2008JP22600

PATIENT
  Age: 21 Year
  Sex: Female

DRUGS (3)
  1. VOLTAREN [Suspect]
     Indication: PAIN IN JAW
     Dosage: 50MG
     Route: 048
  2. VOLTAREN [Suspect]
     Indication: PAIN IN JAW
     Route: 048
  3. BUFERIN [Suspect]

REACTIONS (18)
  - ABDOMINAL PAIN [None]
  - ANAPHYLACTIC REACTION [None]
  - ANOREXIA [None]
  - BRONCHIAL OEDEMA [None]
  - CHEST DISCOMFORT [None]
  - CHEST PAIN [None]
  - DIARRHOEA [None]
  - DYSPHONIA [None]
  - DYSPNOEA [None]
  - HEART RATE DECREASED [None]
  - LYMPHOCYTE STIMULATION TEST POSITIVE [None]
  - OEDEMA [None]
  - RASH [None]
  - RESPIRATORY DEPRESSION [None]
  - RESPIRATORY DISTRESS [None]
  - SECRETION DISCHARGE [None]
  - TONGUE OEDEMA [None]
  - URTICARIA [None]
